FAERS Safety Report 5530642-1 (Version None)
Quarter: 2007Q4

REPORT INFORMATION
  Report Type: 
  Country: None (occurrence: None)
  Receive Date: 20071128
  Receipt Date: 20071128
  Transmission Date: 20080405
  Serious: Yes (Hospitalization)
  Sender: FDA-Public Use
  Company Number: None

PATIENT
  Age: 41 Year
  Sex: Female

DRUGS (1)
  1. ACETAMINOPHEN PM TYLENOL PM [Suspect]
     Indication: SUICIDE ATTEMPT
     Dosage: ~60GM 120 PILLS
     Dates: start: 20071025

REACTIONS (5)
  - ALANINE AMINOTRANSFERASE INCREASED [None]
  - ALCOHOL USE [None]
  - ASPARTATE AMINOTRANSFERASE INCREASED [None]
  - INTERNATIONAL NORMALISED RATIO INCREASED [None]
  - SUICIDE ATTEMPT [None]
